FAERS Safety Report 20637005 (Version 2)
Quarter: 2022Q2

REPORT INFORMATION
  Report Type: Spontaneous
  Country: FR (occurrence: FR)
  Receive Date: 20220325
  Receipt Date: 20220413
  Transmission Date: 20220720
  Serious: Yes (Death)
  Sender: FDA-Public Use
  Company Number: None

PATIENT
  Age: 93 Year
  Sex: Female

DRUGS (6)
  1. ACEBUTOLOL HYDROCHLORIDE [Suspect]
     Active Substance: ACEBUTOLOL HYDROCHLORIDE
     Indication: Medication error
     Dosage: UNIT DOSE 200 MG
     Route: 048
     Dates: start: 20220209, end: 20220209
  2. AMIODARONE [Suspect]
     Active Substance: AMIODARONE
     Indication: Medication error
     Dosage: UNIT DOSE 200MG
     Route: 048
     Dates: start: 20220209, end: 20220209
  3. GABAPENTIN [Suspect]
     Active Substance: GABAPENTIN
     Indication: Medication error
     Dosage: UNIT DOSE 100MG
     Route: 048
     Dates: start: 20220209, end: 20220209
  4. CANDESARTAN CILEXETIL\HYDROCHLOROTHIAZIDE [Suspect]
     Active Substance: CANDESARTAN CILEXETIL\HYDROCHLOROTHIAZIDE
     Indication: Medication error
     Dosage: COKENZEN 16 MG/12.5 MG, TABLET
     Route: 048
     Dates: start: 20220209, end: 20220209
  5. RILMENIDINE PHOSPHATE [Suspect]
     Active Substance: RILMENIDINE PHOSPHATE
     Indication: Medication error
     Dosage: UNIT DOSE 1 MG
     Route: 048
     Dates: start: 20220209, end: 20220209
  6. NICARDIPINE HYDROCHLORIDE [Suspect]
     Active Substance: NICARDIPINE HYDROCHLORIDE
     Indication: Medication error
     Route: 048
     Dates: start: 20220209, end: 20220209

REACTIONS (1)
  - Sudden death [Fatal]

NARRATIVE: CASE EVENT DATE: 20220209
